FAERS Safety Report 9783151 (Version 1)
Quarter: 2013Q4

REPORT INFORMATION
  Report Type: Spontaneous
  Country: US (occurrence: None)
  Receive Date: 20131223
  Receipt Date: 20131223
  Transmission Date: 20140711
  Serious: Yes (Other)
  Sender: FDA-Public Use
  Company Number: EUS-2012-00058

PATIENT
  Age: 8 Year
  Sex: Male

DRUGS (3)
  1. ERWINASE (ASPARAGINASE) [Suspect]
     Indication: ACUTE LYMPHOCYTIC LEUKAEMIA
     Route: 030
     Dates: start: 20100416, end: 2010
  2. DEXAMETHASONE (DEXAMETHASONE) (DEXAMETHASONE) [Concomitant]
  3. ATOVAQUONE (ATOVAQUONE) (ATOVAQUONE) [Concomitant]

REACTIONS (5)
  - Aspartate aminotransferase increased [None]
  - Alanine aminotransferase increased [None]
  - Blood bilirubin increased [None]
  - Hepatic steatosis [None]
  - Hepatic cirrhosis [None]
